FAERS Safety Report 20430098 (Version 1)
Quarter: 2022Q1

REPORT INFORMATION
  Report Type: Report from Study
  Country: US (occurrence: US)
  Receive Date: 20220204
  Receipt Date: 20220204
  Transmission Date: 20220423
  Serious: Yes (Hospitalization)
  Sender: FDA-Public Use
  Company Number: 20P-163-3335830-00

PATIENT

DRUGS (9)
  1. ONCASPAR [Suspect]
     Active Substance: PEGASPARGASE
     Indication: Acute lymphocytic leukaemia
     Dosage: 1250 IU/M2, ON DAYS 1 AND 15
     Route: 042
     Dates: start: 20200122
  2. VENETOCLAX [Suspect]
     Active Substance: VENETOCLAX
     Indication: Acute lymphocytic leukaemia
     Dosage: 200 MG, QD
     Route: 048
     Dates: start: 20191111, end: 20191111
  3. VENETOCLAX [Suspect]
     Active Substance: VENETOCLAX
     Dosage: 400 MG, QD
     Route: 048
     Dates: start: 20191112, end: 20200210
  4. NAVITOCLAX [Suspect]
     Active Substance: NAVITOCLAX
     Indication: Acute lymphocytic leukaemia
     Dosage: 50 MG, QD
     Route: 048
     Dates: start: 20191113, end: 20200211
  5. DEXAMETHASONE [Suspect]
     Active Substance: DEXAMETHASONE
     Indication: Acute lymphocytic leukaemia
     Dosage: 20 MG/M2, BID
     Route: 042
     Dates: start: 20200122, end: 20200210
  6. VINCRISTINE [Suspect]
     Active Substance: VINCRISTINE
     Indication: Acute lymphocytic leukaemia
     Dosage: 1 MG/M2, 1X/WEEK, ON DAYS 1, 8, 15 AND 22
     Route: 042
     Dates: start: 20200122, end: 20200204
  7. LEVAQUIN [Concomitant]
     Active Substance: LEVOFLOXACIN
     Indication: Bacterial infection
     Dosage: 500 MG, QD
     Route: 048
     Dates: start: 20191110
  8. TN UNSPECIFIED [Concomitant]
     Indication: Tumour lysis syndrome
     Dosage: 300 MG, QD
     Route: 048
     Dates: start: 20191110, end: 20191212
  9. VITAMINS [Concomitant]
     Active Substance: VITAMINS
     Indication: Acute lymphocytic leukaemia
     Dosage: 1 DF, QD
     Route: 048
     Dates: start: 20190403

REACTIONS (1)
  - Pneumonia [Recovered/Resolved]

NARRATIVE: CASE EVENT DATE: 20200211
